FAERS Safety Report 9416357 (Version 2)
Quarter: 2013Q3

REPORT INFORMATION
  Report Type: Spontaneous
  Country: CH (occurrence: CH)
  Receive Date: 20130724
  Receipt Date: 20130807
  Transmission Date: 20140515
  Serious: Yes (Other)
  Sender: FDA-Public Use
  Company Number: CH-ELI_LILLY_AND_COMPANY-CH201307004797

PATIENT
  Age: 37 Year
  Sex: Female
  Weight: 72 kg

DRUGS (5)
  1. STRATTERA [Suspect]
     Indication: ATTENTION DEFICIT/HYPERACTIVITY DISORDER
     Dosage: 18 MG, QD
     Route: 048
     Dates: start: 20101115
  2. STRATTERA [Suspect]
     Dosage: 25 MG, QD
     Route: 048
     Dates: end: 20111230
  3. STRATTERA [Suspect]
     Dosage: 10 MG, QD
     Route: 048
     Dates: start: 201302
  4. CYMBALTA [Concomitant]
     Dosage: UNK
     Dates: end: 201212
  5. CONCERTA [Concomitant]

REACTIONS (4)
  - Bladder trabeculation [Recovering/Resolving]
  - Urinary tract infection [Recovering/Resolving]
  - Urethral syndrome [Recovering/Resolving]
  - Off label use [Unknown]
